FAERS Safety Report 4994132-7 (Version None)
Quarter: 2006Q2

REPORT INFORMATION
  Report Type: 
  Country: None (occurrence: None)
  Receive Date: 20060503
  Receipt Date: 20060419
  Transmission Date: 20061013
  Serious: Yes (Hospitalization, Disabling, Other)
  Sender: FDA-Public Use
  Company Number: 2005_000043

PATIENT
  Age: 47 Year
  Sex: Female

DRUGS (3)
  1. DEPOCYT [Suspect]
     Indication: NON-HODGKIN'S LYMPHOMA
     Dosage: 50 MG; X1; INTH
     Route: 037
     Dates: start: 20050415, end: 20050415
  2. METHOTREXATE [Concomitant]
  3. CYTARABINE [Concomitant]

REACTIONS (6)
  - ABASIA [None]
  - COORDINATION ABNORMAL [None]
  - MYELOPATHY [None]
  - PARAPARESIS [None]
  - SENSORY LOSS [None]
  - UPPER MOTOR NEURONE LESION [None]
